FAERS Safety Report 6057929-0 (Version None)
Quarter: 2009Q1

REPORT INFORMATION
  Report Type: 
  Country: None (occurrence: None)
  Receive Date: 20090129
  Receipt Date: 20090127
  Transmission Date: 20090719
  Serious: Yes (Hospitalization)
  Sender: FDA-Public Use
  Company Number: US-MERCK-0901USA03380

PATIENT
  Age: 59 Year
  Sex: Male

DRUGS (5)
  1. ISENTRESS [Suspect]
     Indication: HIV INFECTION
     Route: 048
  2. TRUVADA [Concomitant]
     Route: 065
  3. PNEUMOVAX 23 [Suspect]
     Indication: PROPHYLAXIS
     Route: 065
     Dates: start: 20081113
  4. TRAZODONE HYDROCHLORIDE [Suspect]
     Route: 065
  5. VALIUM [Suspect]
     Route: 065

REACTIONS (7)
  - AGITATION [None]
  - ANGER [None]
  - IRRITABILITY [None]
  - MULTIPLE DRUG OVERDOSE [None]
  - OVERDOSE [None]
  - PSYCHOTIC DISORDER [None]
  - SUICIDE ATTEMPT [None]
